FAERS Safety Report 8088822-X (Version None)
Quarter: 2012Q1

REPORT INFORMATION
  Report Type: 
  Country: None (occurrence: None)
  Receive Date: 20120128
  Receipt Date: 20110405
  Transmission Date: 20120608
  Serious: No
  Sender: FDA-Public Use
  Company Number: US-ABBOTT-11P-163-0717130-00

PATIENT
  Sex: Female
  Weight: 77.18 kg

DRUGS (2)
  1. PRINZIDE [Concomitant]
     Indication: HYPERTENSION
     Dosage: 10/12.5 MG
  2. HUMIRA [Suspect]
     Indication: RHEUMATOID ARTHRITIS
     Route: 058
     Dates: start: 20110321

REACTIONS (4)
  - LUPUS-LIKE SYNDROME [None]
  - FLUSHING [None]
  - ERYTHEMA [None]
  - ALOPECIA [None]
